FAERS Safety Report 25798755 (Version 1)
Quarter: 2025Q3

REPORT INFORMATION
  Report Type: Report from Study
  Country: US (occurrence: US)
  Receive Date: 20250913
  Receipt Date: 20250913
  Transmission Date: 20251021
  Serious: Yes (Life-Threatening, Other)
  Sender: ALEXION PHARMACEUTICALS
  Company Number: US-AstraZeneca-CH-00946810A

PATIENT
  Sex: Female

DRUGS (1)
  1. BUDESONIDE\FORMOTEROL\GLYCOPYRRONIUM [Suspect]
     Active Substance: BUDESONIDE\FORMOTEROL\GLYCOPYRRONIUM
     Route: 065

REACTIONS (11)
  - Internal haemorrhage [Unknown]
  - Chronic obstructive pulmonary disease [Unknown]
  - Myocardial infarction [Unknown]
  - Respiratory failure [Unknown]
  - Osteoarthritis [Unknown]
  - Varicose vein [Unknown]
  - Carpal tunnel syndrome [Unknown]
  - Rotator cuff syndrome [Unknown]
  - Hypertension [Unknown]
  - Gastrooesophageal reflux disease [Unknown]
  - Urinary incontinence [Unknown]
